FAERS Safety Report 19905062 (Version 1)
Quarter: 2021Q3

REPORT INFORMATION
  Report Type: Spontaneous
  Country: US (occurrence: US)
  Receive Date: 20210930
  Receipt Date: 20210930
  Transmission Date: 20211014
  Serious: No
  Sender: FDA-Public Use
  Company Number: None

PATIENT
  Age: 69 Year
  Sex: Female

DRUGS (2)
  1. MAGNESIUM CHLORIDE INJECTION [Suspect]
     Active Substance: MAGNESIUM CHLORIDE
     Indication: HYPOMAGNESAEMIA
     Route: 042
     Dates: start: 20210924, end: 20210929
  2. MAGNESIUM CHLORIDE INJECTION [Suspect]
     Active Substance: MAGNESIUM CHLORIDE
     Indication: STEM CELL TRANSPLANT
     Route: 042
     Dates: start: 20210924, end: 20210929

REACTIONS (2)
  - Pruritus [None]
  - Flushing [None]

NARRATIVE: CASE EVENT DATE: 20210924
